FAERS Safety Report 8793485 (Version 2)
Quarter: 2013Q1

REPORT INFORMATION
  Report Type: Report from Study
  Country: JP (occurrence: JP)
  Receive Date: 20120918
  Receipt Date: 20130220
  Transmission Date: 20140127
  Serious: Yes (Hospitalization)
  Sender: FDA-Public Use
  Company Number: JP-SHIRE-ALL1-2012-04365

PATIENT
  Age: 83 Year
  Sex: Female

DRUGS (35)
  1. 405 (LANTHANUM CARBONATE) [Suspect]
     Indication: HYPERPHOSPHATAEMIA
     Dosage: 250 MG, UNKNOWN (IMMEDIATELY AFTER MEALS)
     Route: 048
     Dates: start: 20100815, end: 20101101
  2. 405 (LANTHANUM CARBONATE) [Suspect]
     Dosage: 500 MG, UNKNOWN (IMMEDIATELY AFTER MEALS)
     Route: 048
     Dates: start: 20101102, end: 20110821
  3. 405 (LANTHANUM CARBONATE) [Suspect]
     Dosage: 750 MG, UNKNOWN (IMMEDIATELY AFTER MEALS)
     Route: 048
     Dates: start: 20110822, end: 20120110
  4. 405 (LANTHANUM CARBONATE) [Suspect]
     Dosage: 1000 MG, UNKNOWN (IMMEDIATELY AFTER MEALS)
     Route: 048
     Dates: start: 20120111, end: 20120206
  5. 405 (LANTHANUM CARBONATE) [Suspect]
     Dosage: 750 MG, UNKNOWN (IMMEDIATELY AFTER MEALS)
     Route: 048
     Dates: start: 20120207, end: 20120409
  6. 405 (LANTHANUM CARBONATE) [Suspect]
     Dosage: 500 MG, UNKNOWN (IMMEDIATELY AFTER MEALS)
     Route: 048
     Dates: start: 20120410
  7. SEVELAMER HYDROCHLORIDE [Concomitant]
     Indication: HYPERPHOSPHATAEMIA
     Dosage: 2750 MG, UNKNOWN
     Route: 048
     Dates: start: 20100525, end: 20101205
  8. SEVELAMER HYDROCHLORIDE [Concomitant]
     Dosage: 3250 MG, UNKNOWN
     Route: 048
     Dates: start: 20101206, end: 20110221
  9. SEVELAMER HYDROCHLORIDE [Concomitant]
     Dosage: 2750 MG, UNKNOWN
     Route: 048
     Dates: start: 20110222, end: 20110510
  10. SEVELAMER HYDROCHLORIDE [Concomitant]
     Dosage: 3000 MG, UNKNOWN
     Route: 048
     Dates: start: 20110511, end: 20110704
  11. SEVELAMER HYDROCHLORIDE [Concomitant]
     Dosage: 3250 MG, UNKNOWN
     Route: 048
     Dates: start: 20110705
  12. SEVELAMER HYDROCHLORIDE [Concomitant]
     Dosage: 3000 MG, UNKNOWN
     Route: 048
     Dates: start: 20110920, end: 20111121
  13. SEVELAMER HYDROCHLORIDE [Concomitant]
     Dosage: 3250 MG, UNKNOWN
     Route: 048
     Dates: start: 20111122, end: 20120206
  14. SEVELAMER HYDROCHLORIDE [Concomitant]
     Dosage: 2250 MG, UNKNOWN
     Route: 048
     Dates: start: 20120207, end: 20120305
  15. SEVELAMER HYDROCHLORIDE [Concomitant]
     Dosage: 1750 MG, UNKNOWN
     Route: 048
     Dates: start: 20120306, end: 20120330
  16. OXAROL [Concomitant]
     Indication: PRODUCT USED FOR UNKNOWN INDICATION
     Dosage: 5 ?G, 1X/WEEK
     Route: 041
     Dates: start: 20100805, end: 20101027
  17. OXAROL [Concomitant]
     Dosage: 7.5 ?G, 1X/WEEK
     Route: 041
     Dates: start: 20101103, end: 20101110
  18. OXAROL [Concomitant]
     Dosage: 5 ?G, 1X/WEEK
     Route: 041
     Dates: start: 20101117, end: 20101215
  19. OXAROL [Concomitant]
     Dosage: 7.5 ?G, 1X/WEEK
     Route: 041
     Dates: start: 20101222
  20. OXAROL [Concomitant]
     Dosage: 15 ?G, 1X/WEEK
     Route: 041
     Dates: start: 20110405, end: 20110418
  21. OXAROL [Concomitant]
     Dosage: 7.5 ?G, 1X/WEEK
     Route: 041
     Dates: start: 20110420, end: 20110606
  22. OXAROL [Concomitant]
     Dosage: 10 ?G, 1X/WEEK
     Route: 041
     Dates: start: 20110608, end: 20110620
  23. OXAROL [Concomitant]
     Dosage: 7.5 ?G, 1X/WEEK
     Route: 041
     Dates: start: 20110622
  24. OXAROL [Concomitant]
     Dosage: 5 ?G, 1X/WEEK
     Route: 041
     Dates: start: 20110907, end: 20111010
  25. OXAROL [Concomitant]
     Dosage: 7.5 ?G, 1X/WEEK
     Route: 041
     Dates: start: 20111012, end: 20111217
  26. OXAROL [Concomitant]
     Dosage: 10 ?G, 1X/WEEK
     Route: 041
     Dates: start: 20111220, end: 20120109
  27. OXAROL [Concomitant]
     Dosage: 12.5 ?G, 1X/WEEK
     Route: 041
     Dates: start: 20120111, end: 20120205
  28. OXAROL [Concomitant]
     Dosage: 10 ?G, 1X/WEEK
     Route: 041
     Dates: start: 20120207, end: 20120507
  29. OXAROL [Concomitant]
     Dosage: 7.5 ?G, 1X/WEEK
     Route: 041
     Dates: start: 20120509
  30. REGPARA [Concomitant]
     Indication: HYPERPARATHYROIDISM SECONDARY
     Dosage: 25 MG, UNKNOWN
     Route: 048
     Dates: start: 20101110, end: 20110208
  31. REGPARA [Concomitant]
     Dosage: 50 MG, UNKNOWN
     Route: 048
     Dates: start: 20110209
  32. REGPARA [Concomitant]
     Dosage: 75 MG, UNKNOWN
     Route: 048
     Dates: start: 20120605
  33. ALOSENN                            /00476901/ [Concomitant]
     Indication: PRODUCT USED FOR UNKNOWN INDICATION
     Dosage: 1 G, UNKNOWN
     Route: 048
  34. SENNOSIDE                          /00571901/ [Concomitant]
     Indication: PRODUCT USED FOR UNKNOWN INDICATION
     Dosage: 24 MG, UNKNOWN
     Route: 048
  35. NESP [Concomitant]
     Indication: PRODUCT USED FOR UNKNOWN INDICATION
     Dosage: 15 ?G, UNKNOWN
     Route: 041

REACTIONS (2)
  - Traumatic fracture [Recovered/Resolved]
  - Fall [Recovered/Resolved]
